FAERS Safety Report 10188224 (Version 1)
Quarter: 2014Q2

REPORT INFORMATION
  Report Type: Other
  Country: US (occurrence: US)
  Receive Date: 20140522
  Receipt Date: 20140522
  Transmission Date: 20141212
  Serious: Yes (Hospitalization)
  Sender: FDA-Public Use
  Company Number: US-SHIRE-US201402293

PATIENT
  Age: 47 Year
  Sex: Female

DRUGS (1)
  1. FIRAZYR [Suspect]
     Indication: HEREDITARY ANGIOEDEMA
     Dosage: 30 MG (ONE SYRINGE), AS REQ^D
     Route: 058
     Dates: start: 20130726

REACTIONS (2)
  - Laryngeal oedema [Unknown]
  - Lip swelling [Unknown]
